FAERS Safety Report 6366405-7 (Version None)
Quarter: 2009Q3

REPORT INFORMATION
  Report Type: 
  Country: None (occurrence: None)
  Receive Date: 20090915
  Receipt Date: 20090901
  Transmission Date: 20100115
  Serious: Yes (Other)
  Sender: FDA-Public Use
  Company Number: 8051741

PATIENT
  Age: 62 Year
  Sex: Female

DRUGS (2)
  1. KEPPRA [Suspect]
  2. ZYPREXA [Suspect]

REACTIONS (1)
  - MANIA [None]
